FAERS Safety Report 13037742 (Version 3)
Quarter: 2017Q3

REPORT INFORMATION
  Report Type: Spontaneous
  Country: FR (occurrence: FR)
  Receive Date: 20161217
  Receipt Date: 20170919
  Transmission Date: 20171127
  Serious: Yes (Death, Other)
  Sender: FDA-Public Use
  Company Number: FR-ASTRAZENECA-2016SF31877

PATIENT
  Age: 82 Year
  Sex: Male

DRUGS (24)
  1. MERONEM [Suspect]
     Active Substance: MEROPENEM
     Indication: PNEUMONIA
     Route: 042
     Dates: start: 20161107, end: 20161114
  2. XALATAN [Concomitant]
     Active Substance: LATANOPROST
  3. FLECTOR [Concomitant]
     Active Substance: DICLOFENAC EPOLAMINE
  4. INEXIUM [Suspect]
     Active Substance: ESOMEPRAZOLE
     Indication: HYPERCHLORHYDRIA
     Route: 048
     Dates: start: 20161019, end: 20161115
  5. TAZOCILLIN [Suspect]
     Active Substance: PIPERACILLIN SODIUM\TAZOBACTAM SODIUM
     Indication: INFECTION
     Route: 065
     Dates: start: 20161027, end: 20161107
  6. EUPRESSYL [Concomitant]
     Active Substance: URAPIDIL
  7. KETOTIFEN FUMARATE. [Concomitant]
     Active Substance: KETOTIFEN FUMARATE
  8. NASACORT [Concomitant]
     Active Substance: TRIAMCINOLONE ACETONIDE
  9. XOLAAM [Concomitant]
     Active Substance: ALUMINUM HYDROXIDE\MAGNESIUM HYDROXIDE
     Dosage: 3 TO 4 DAILY
  10. CEFOTAXIME [Concomitant]
     Active Substance: CEFOTAXIME SODIUM
     Indication: ANTIBIOTIC THERAPY
     Dates: start: 20161022, end: 20161026
  11. DAFALGAN [Concomitant]
     Active Substance: ACETAMINOPHEN
  12. IMOVANE [Concomitant]
     Active Substance: ZOPICLONE
  13. RILMENIDINE [Concomitant]
     Active Substance: RILMENIDINE
  14. SERESTA [Concomitant]
     Active Substance: OXAZEPAM
  15. ARTOLAC [Concomitant]
  16. ZYVOXID [Concomitant]
     Active Substance: LINEZOLID
     Indication: PNEUMONIA
     Dates: start: 20161031, end: 20161107
  17. FUROSEMIDE. [Concomitant]
     Active Substance: FUROSEMIDE
  18. MIANSERIN [Concomitant]
     Active Substance: MIANSERIN
  19. SPECIAFOLDINE [Concomitant]
     Active Substance: FOLIC ACID
  20. PERMIXON [Concomitant]
     Active Substance: HERBALS\SAW PALMETTO
  21. SYMBICORT [Concomitant]
     Active Substance: BUDESONIDE\FORMOTEROL FUMARATE DIHYDRATE
     Dosage: 400 THREE TIMES A DAY
  22. KARDEGIC [Concomitant]
     Active Substance: ASPIRIN LYSINE
  23. PERINDOPRIL [Concomitant]
     Active Substance: PERINDOPRIL
  24. PANTOPRAZOLE [Concomitant]
     Active Substance: PANTOPRAZOLE

REACTIONS (2)
  - Thrombocytopenia [Fatal]
  - Pneumonitis [Unknown]

NARRATIVE: CASE EVENT DATE: 20161109
